FAERS Safety Report 6115606-1 (Version None)
Quarter: 2009Q1

REPORT INFORMATION
  Report Type: 
  Country: None (occurrence: None)
  Receive Date: 20090313
  Receipt Date: 20090226
  Transmission Date: 20090719
  Serious: Yes (Other)
  Sender: FDA-Public Use
  Company Number: ES-GENENTECH-278729

PATIENT
  Age: 6 Year
  Sex: Male

DRUGS (1)
  1. MABTHERA [Suspect]
     Indication: IDIOPATHIC THROMBOCYTOPENIC PURPURA
     Dosage: UNK
     Route: 042
     Dates: start: 20070309

REACTIONS (2)
  - B-LYMPHOCYTE COUNT DECREASED [None]
  - HYPOGAMMAGLOBULINAEMIA [None]
